FAERS Safety Report 5661098-6 (Version None)
Quarter: 2008Q1

REPORT INFORMATION
  Report Type: 
  Country: None (occurrence: None)
  Receive Date: 20080305
  Receipt Date: 20080227
  Transmission Date: 20080703
  Serious: Yes (Other)
  Sender: FDA-Public Use
  Company Number: 2008004862

PATIENT
  Age: 44 Year
  Sex: Female
  Weight: 56.6996 kg

DRUGS (1)
  1. BENADRYL [Suspect]
     Indication: RHINORRHOEA
     Dosage: 1 TABLET ONE TIME, ORAL
     Route: 048
     Dates: start: 20080226, end: 20080226

REACTIONS (3)
  - NASAL CONGESTION [None]
  - RHINORRHOEA [None]
  - SYNCOPE [None]
